FAERS Safety Report 11632176 (Version 2)
Quarter: 2016Q2

REPORT INFORMATION
  Report Type: Report from Study
  Country: DE (occurrence: DE)
  Receive Date: 20151015
  Receipt Date: 20160623
  Transmission Date: 20160815
  Serious: Yes (Death, Hospitalization)
  Sender: FDA-Public Use
  Company Number: DE-ROCHE-1646621

PATIENT
  Age: 68 Year
  Sex: Male

DRUGS (14)
  1. NOVALGIN [Concomitant]
     Active Substance: METAMIZOLE SODIUM
  2. HYDROCHLOROTHIAZIDE. [Concomitant]
     Active Substance: HYDROCHLOROTHIAZIDE
  3. TOCILIZUMAB [Suspect]
     Active Substance: TOCILIZUMAB
     Indication: RHEUMATOID ARTHRITIS
     Route: 042
     Dates: start: 20150603, end: 20150603
  4. DIGITOXIN [Concomitant]
     Active Substance: DIGITOXIN
  5. SIFROL [Concomitant]
     Active Substance: PRAMIPEXOLE
  6. VALSARTAN. [Concomitant]
     Active Substance: VALSARTAN
  7. CONCOR [Concomitant]
     Active Substance: BISOPROLOL FUMARATE
  8. TOCILIZUMAB [Suspect]
     Active Substance: TOCILIZUMAB
     Indication: RHEUMATOID ARTHRITIS
     Route: 058
     Dates: end: 20150515
  9. CLEXANE [Concomitant]
     Active Substance: ENOXAPARIN SODIUM
  10. AZATHIOPRIN [Suspect]
     Active Substance: AZATHIOPRINE
     Indication: RHEUMATOID ARTHRITIS
     Route: 065
     Dates: end: 201507
  11. PREDNISOLON [Concomitant]
     Active Substance: PREDNISOLONE
  12. NEXIUM [Concomitant]
     Active Substance: ESOMEPRAZOLE MAGNESIUM
  13. TORASEMID [Concomitant]
     Active Substance: TORSEMIDE
  14. DAFIRO [Concomitant]
     Active Substance: AMLODIPINE\VALSARTAN

REACTIONS (5)
  - Brain injury [Fatal]
  - Multiple organ dysfunction syndrome [Fatal]
  - Rectal cancer [Not Recovered/Not Resolved]
  - Post procedural sepsis [Fatal]
  - Post procedural haemorrhage [Fatal]

NARRATIVE: CASE EVENT DATE: 20150619
